FAERS Safety Report 7930358-8 (Version None)
Quarter: 2011Q4

REPORT INFORMATION
  Report Type: 
  Country: None (occurrence: None)
  Receive Date: 20111121
  Receipt Date: 20110818
  Transmission Date: 20120403
  Serious: No
  Sender: FDA-Public Use
  Company Number: US-BAYER-2011-079201

PATIENT
  Sex: Male

DRUGS (4)
  1. IBUPROFEN (ADVIL) [Concomitant]
     Indication: MUSCLE STRAIN
  2. ALEVE (CAPLET) [Suspect]
     Indication: MUSCLE STRAIN
  3. ALEVE (CAPLET) [Suspect]
     Indication: HEADACHE
  4. IBUPROFEN (ADVIL) [Concomitant]
     Indication: HEADACHE

REACTIONS (2)
  - HEADACHE [None]
  - MUSCLE STRAIN [None]
